FAERS Safety Report 9665860 (Version 1)
Quarter: 2013Q4

REPORT INFORMATION
  Report Type: Spontaneous
  Country: GB (occurrence: GB)
  Receive Date: 20131104
  Receipt Date: 20131104
  Transmission Date: 20140711
  Serious: Yes (Life-Threatening, Hospitalization, Disabling)
  Sender: FDA-Public Use
  Company Number: PHHY2013GB119595

PATIENT
  Age: 9 Year
  Sex: Male

DRUGS (1)
  1. AZITHROMYCIN [Suspect]
     Indication: LOWER RESPIRATORY TRACT INFECTION
     Route: 048
     Dates: start: 20100926, end: 20100930

REACTIONS (12)
  - Encephalitis [Not Recovered/Not Resolved]
  - Intermittent explosive disorder [Not Recovered/Not Resolved]
  - Oppositional defiant disorder [Not Recovered/Not Resolved]
  - Attention deficit/hyperactivity disorder [Not Recovered/Not Resolved]
  - Tourette^s disorder [Not Recovered/Not Resolved]
  - Weight decreased [Unknown]
  - Lip swelling [Unknown]
  - Swelling face [Unknown]
  - Skin exfoliation [Unknown]
  - Vomiting [Unknown]
  - Stevens-Johnson syndrome [Not Recovered/Not Resolved]
  - Pain [Unknown]
